FAERS Safety Report 5685364-3 (Version None)
Quarter: 2008Q1

REPORT INFORMATION
  Report Type: 
  Country: None (occurrence: None)
  Receive Date: 20080328
  Receipt Date: 20080318
  Transmission Date: 20080703
  Serious: Yes (Other)
  Sender: FDA-Public Use
  Company Number: ZA-PFIZER INC-2008025273

PATIENT
  Age: 65 Year
  Sex: Female

DRUGS (2)
  1. CELEBREX [Suspect]
     Route: 048
     Dates: start: 20020101, end: 20020101
  2. ESTROGENS [Concomitant]

REACTIONS (1)
  - THROMBOSIS [None]
